FAERS Safety Report 10027159 (Version 1)
Quarter: 2014Q1

REPORT INFORMATION
  Report Type: Spontaneous
  Country: US (occurrence: US)
  Receive Date: 20140321
  Receipt Date: 20140321
  Transmission Date: 20141002
  Serious: No
  Sender: FDA-Public Use
  Company Number: US-MYLANLABS-2013S1024530

PATIENT
  Age: 54 Year
  Sex: Female
  Weight: 49.9 kg

DRUGS (2)
  1. ESTRADIOL TRANSDERMAL SYSTEM, USP [Suspect]
     Indication: MENOPAUSAL SYMPTOMS
     Dosage: QWK
     Route: 062
     Dates: start: 201207, end: 20130911
  2. PROGESTERONE [Concomitant]
     Indication: MENOPAUSAL SYMPTOMS
     Route: 048
     Dates: start: 201207, end: 20130911

REACTIONS (5)
  - Drug effect increased [Recovered/Resolved]
  - Menorrhagia [Recovered/Resolved]
  - Abdominal distension [Recovered/Resolved]
  - Application site irritation [Recovered/Resolved]
  - Unevaluable event [Not Recovered/Not Resolved]
